FAERS Safety Report 20746257 (Version 2)
Quarter: 2022Q4

REPORT INFORMATION
  Report Type: Spontaneous
  Country: US (occurrence: US)
  Receive Date: 20220425
  Receipt Date: 20221006
  Transmission Date: 20230113
  Serious: No
  Sender: FDA-Public Use
  Company Number: US-BIOGEN-2022BI01116939

PATIENT
  Sex: Female

DRUGS (16)
  1. TECFIDERA [Suspect]
     Active Substance: DIMETHYL FUMARATE
     Indication: Multiple sclerosis
     Route: 050
     Dates: start: 20200109
  2. TYLENOL [Concomitant]
     Active Substance: ACETAMINOPHEN
     Dosage: 500MG BY MOUTH EVERY EIGHT HOURS IF NEEDED
     Route: 050
  3. VITAMIN C CR [Concomitant]
     Indication: Cystitis
     Dosage: ONE TABLET (1000 MG TOTAL) BY MOUTH ONE TIME EACH DAY
     Route: 050
  4. LIPITOR [Concomitant]
     Active Substance: ATORVASTATIN CALCIUM
     Dosage: AT BEDTIME
     Route: 050
  5. LIORESAL [Concomitant]
     Active Substance: BACLOFEN
     Dosage: TAKE 10 MG BY MOUTH 3 TIMES(AM, NOON, AFTERNOON)
     Route: 050
  6. CARBOXYMETHYLCELLULOSE [Concomitant]
     Active Substance: CARBOXYMETHYLCELLULOSE
     Dosage: 1 PERCENT OPHTHALMIC SOLUTION, ADMINISTER 2 DROPS INTO BOTH EYES 1 TIME EACH DAY
     Route: 050
  7. ENEMEEZ [Concomitant]
     Active Substance: DOCUSATE SODIUM
     Dosage: 1 ENEMA INTO RECTUM EVERY 3 DAYS
     Route: 050
  8. ARICEPT [Concomitant]
     Active Substance: DONEPEZIL HYDROCHLORIDE
     Dosage: 1 TIME EACH DAY IN THE MORNING
     Route: 050
  9. PROZAC [Concomitant]
     Active Substance: FLUOXETINE HYDROCHLORIDE
     Dosage: 1 TIME EACH DAY IN THE MORNING
     Route: 050
  10. NEURONTIN [Concomitant]
     Active Substance: GABAPENTIN
     Dosage: TAKE 1 CAPSULE (100 60 CAPSULE 3 MG TOTAL) BY MOUTH 2 TIMES A DAY
     Route: 050
  11. HYDRODIURIL [Concomitant]
     Active Substance: HYDROCHLOROTHIAZIDE
     Dosage: 1 TIME EACH DAY IN THE MORNING
     Route: 050
  12. CENTRUM ADULTS [Concomitant]
     Dosage: 1 TIME EACH DAY IN THE AM
     Route: 050
  13. HEAD AND SHOULDERS [Concomitant]
     Active Substance: PYRITHIONE ZINC
     Dosage: 1 APPLICATION TOPICALLY EVERY 7 DAYS ON WEDNESDAY
     Route: 050
  14. PERICOLACE [Concomitant]
     Dosage: 8.6-50 MG PER TABLET, 1 TIME EACH DAY IN THE MORNING
     Route: 050
  15. PRINIVIL [Concomitant]
     Active Substance: LISINOPRIL
     Dosage: 1 TIME EACH DAY IN THE MORNING
     Route: 050
  16. ZESTRIL [Concomitant]
     Active Substance: LISINOPRIL
     Dosage: 1 TIME EACH DAY IN THE MORNING
     Route: 050

REACTIONS (3)
  - Drug ineffective [Unknown]
  - Multiple sclerosis [Unknown]
  - Lymphocyte count decreased [Unknown]
